FAERS Safety Report 6240934-9 (Version None)
Quarter: 2009Q2

REPORT INFORMATION
  Report Type: 
  Country: None (occurrence: None)
  Receive Date: 20090623
  Receipt Date: 20090618
  Transmission Date: 20091009
  Serious: Yes (Other)
  Sender: FDA-Public Use
  Company Number: B0579822A

PATIENT
  Sex: Female
  Weight: 97 kg

DRUGS (1)
  1. ALLI [Suspect]
     Dosage: 1CAP THREE TIMES PER DAY
     Route: 048
     Dates: start: 20090609, end: 20090616

REACTIONS (2)
  - DERMATITIS BULLOUS [None]
  - PRURITUS [None]
